FAERS Safety Report 19506690 (Version 10)
Quarter: 2022Q3

REPORT INFORMATION
  Report Type: Spontaneous
  Country: US (occurrence: US)
  Receive Date: 20210708
  Receipt Date: 20220728
  Transmission Date: 20221027
  Serious: Yes (Hospitalization, Other)
  Sender: FDA-Public Use
  Company Number: US-PFIZER INC-2021703546

PATIENT
  Age: 63 Year
  Sex: Female

DRUGS (1)
  1. XELJANZ XR [Suspect]
     Active Substance: TOFACITINIB CITRATE
     Dosage: 11 MG, 1X/DAY

REACTIONS (17)
  - Hip arthroplasty [Recovering/Resolving]
  - Spinal stenosis [Unknown]
  - Immobile [Unknown]
  - Condition aggravated [Not Recovered/Not Resolved]
  - Malaise [Unknown]
  - Crying [Unknown]
  - Pain [Unknown]
  - Migraine [Unknown]
  - Pain in extremity [Unknown]
  - Sinus disorder [Unknown]
  - Oropharyngeal pain [Unknown]
  - Nasal congestion [Unknown]
  - Insomnia [Unknown]
  - Gait inability [Unknown]
  - Mobility decreased [Unknown]
  - Illness [Unknown]
  - Contusion [Not Recovered/Not Resolved]
